FAERS Safety Report 4801872-9 (Version None)
Quarter: 2005Q4

REPORT INFORMATION
  Report Type: 
  Country: None (occurrence: None)
  Receive Date: 20051011
  Receipt Date: 20050927
  Transmission Date: 20060501
  Serious: Yes (Hospitalization)
  Sender: FDA-Public Use
  Company Number: 2005105022

PATIENT
  Age: 64 Year
  Sex: Female
  Weight: 59.8748 kg

DRUGS (4)
  1. BENGAY ULTRA STRENGTH PATCH (MENTHOL) [Suspect]
     Indication: BACK PAIN
     Dosage: 1 PATCH ONCE, TOPICAL
     Route: 061
     Dates: start: 20050718, end: 20050718
  2. PREDNISONE [Concomitant]
  3. LOSARTAN POTASSIUM [Concomitant]
  4. THEOPHYLLINE [Concomitant]

REACTIONS (4)
  - APPLICATION SITE REACTION [None]
  - BURNS SECOND DEGREE [None]
  - DIZZINESS [None]
  - FEELING ABNORMAL [None]
